FAERS Safety Report 25552044 (Version 2)
Quarter: 2025Q3

REPORT INFORMATION
  Report Type: Spontaneous
  Country: JP (occurrence: JP)
  Receive Date: 20250715
  Receipt Date: 20250725
  Transmission Date: 20251021
  Serious: Yes (Hospitalization)
  Sender: AMGEN
  Company Number: JP-AMGEN-JPNSP2025133324

PATIENT
  Age: 9 Decade
  Sex: Male

DRUGS (1)
  1. IMDELLTRA [Suspect]
     Active Substance: TARLATAMAB-DLLE
     Indication: Product used for unknown indication
     Route: 040
     Dates: start: 20250630

REACTIONS (6)
  - Neoplasm progression [Not Recovered/Not Resolved]
  - Metastasis [Not Recovered/Not Resolved]
  - C-reactive protein increased [Recovering/Resolving]
  - White blood cell count increased [Recovering/Resolving]
  - Fall [Unknown]
  - Pyrexia [Recovered/Resolved]

NARRATIVE: CASE EVENT DATE: 20250705
